FAERS Safety Report 6910800-1 (Version None)
Quarter: 2010Q3

REPORT INFORMATION
  Report Type: 
  Country: None (occurrence: None)
  Receive Date: 20100716
  Receipt Date: 20091202
  Transmission Date: 20110219
  Serious: Yes (Other)
  Sender: FDA-Public Use
  Company Number: 2009306028

PATIENT
  Sex: Male

DRUGS (2)
  1. CELEBREX [Suspect]
  2. TRAMADOL HCL [Concomitant]

REACTIONS (1)
  - RENAL IMPAIRMENT [None]
